FAERS Safety Report 4415955-9 (Version None)
Quarter: 2004Q3

REPORT INFORMATION
  Report Type: 
  Country: None (occurrence: None)
  Receive Date: 20040803
  Receipt Date: 20040803
  Transmission Date: 20050211
  Serious: Yes (Other)
  Sender: FDA-Public Use
  Company Number: None

PATIENT
  Age: 41 Year
  Sex: Female
  Weight: 61.2356 kg

DRUGS (3)
  1. ARTHROTEC [Suspect]
     Indication: ARTHRITIS
     Dosage: 1 TABLET   TWICE A DA   ORAL
     Route: 048
     Dates: start: 20040315, end: 20041231
  2. ARTHROTEC [Suspect]
     Indication: PAIN
     Dosage: 1 TABLET   TWICE A DA   ORAL
     Route: 048
     Dates: start: 20040315, end: 20041231
  3. ARTHROTEC [Suspect]
     Indication: SWELLING
     Dosage: 1 TABLET   TWICE A DA   ORAL
     Route: 048
     Dates: start: 20040315, end: 20041231

REACTIONS (6)
  - CONDITION AGGRAVATED [None]
  - DIARRHOEA [None]
  - DRUG INEFFECTIVE [None]
  - MUSCLE CRAMP [None]
  - PAIN [None]
  - PHARMACEUTICAL PRODUCT COMPLAINT [None]
